FAERS Safety Report 7931615-1 (Version None)
Quarter: 2011Q4

REPORT INFORMATION
  Report Type: 
  Country: None (occurrence: None)
  Receive Date: 20111121
  Receipt Date: 20111107
  Transmission Date: 20120403
  Serious: Yes (Hospitalization, Other)
  Sender: FDA-Public Use
  Company Number: PHHY2011BR098929

PATIENT
  Sex: Male

DRUGS (14)
  1. RASILEZ HCT [Suspect]
     Indication: RENAL DISORDER
  2. ACETAMINOPHEN [Concomitant]
     Indication: PAIN IN EXTREMITY
     Dosage: 1 DF
     Route: 048
  3. LIPITOR [Concomitant]
     Indication: BLOOD CHOLESTEROL
     Dosage: 1 DF
     Route: 048
  4. TOFRANIL [Concomitant]
     Indication: URINARY INCONTINENCE
     Dosage: 2 DF
     Route: 048
  5. RASILEZ HCT [Suspect]
     Indication: HYPERTENSION
     Dosage: 0.5 DF
     Route: 048
  6. SUSTRATE [Concomitant]
     Indication: CHEST PAIN
     Dosage: 1 DF
     Route: 048
  7. SYMBICORT [Concomitant]
     Indication: DYSPNOEA
  8. COMBIVENT [Concomitant]
     Indication: DYSPNOEA
     Dosage: 2 INHALATIONS DAILY
  9. DIGOXIN [Concomitant]
     Indication: ARRHYTHMIA
     Dosage: 1 TABLETS IN ALTERNATED DAYS
     Route: 048
  10. TIOPRONIN [Concomitant]
     Indication: DYSPNOEA
     Dosage: 2 INHALATIONS DAILY, INHALER ROUTE
  11. DACTONE [Concomitant]
     Indication: CARDIAC DISORDER
     Dosage: 1 DF
     Route: 048
  12. BAMIFIX [Concomitant]
     Indication: RESPIRATORY DISORDER
     Dosage: 1 DRAGEE A DAY
     Route: 048
  13. CAPTOPRIL [Concomitant]
     Dosage: 1 DF
     Route: 048
  14. CLONAZEPAM [Concomitant]
     Indication: SLEEP DISORDER
     Dosage: 1 DF
     Route: 048

REACTIONS (7)
  - PNEUMONIA [None]
  - RENAL DISORDER [None]
  - WRONG TECHNIQUE IN DRUG USAGE PROCESS [None]
  - ARTHRALGIA [None]
  - PAIN IN EXTREMITY [None]
  - BLOOD URIC ACID ABNORMAL [None]
  - GAIT DISTURBANCE [None]
